FAERS Safety Report 11734152 (Version 1)
Quarter: 2015Q4

REPORT INFORMATION
  Report Type: Report from Study
  Country: US (occurrence: US)
  Receive Date: 20151113
  Receipt Date: 20151113
  Transmission Date: 20160304
  Serious: No
  Sender: FDA-Public Use
  Company Number: PHEH2015US022805

PATIENT
  Age: 64 Year
  Sex: Female

DRUGS (1)
  1. COSENTYX [Suspect]
     Active Substance: SECUKINUMAB
     Indication: PSORIASIS
     Dosage: 300 MG, QMO
     Route: 058
     Dates: start: 20150909

REACTIONS (5)
  - Injection site haemorrhage [Unknown]
  - Choking [Unknown]
  - Peripheral swelling [Unknown]
  - Injection site urticaria [Unknown]
  - Chest discomfort [Unknown]

NARRATIVE: CASE EVENT DATE: 20151103
